FAERS Safety Report 6233016-3 (Version None)
Quarter: 2009Q2

REPORT INFORMATION
  Report Type: 
  Country: None (occurrence: None)
  Receive Date: 20090617
  Receipt Date: 20090609
  Transmission Date: 20091009
  Serious: Yes (Hospitalization)
  Sender: FDA-Public Use
  Company Number: A0791612A

PATIENT
  Sex: Male

DRUGS (2)
  1. FLUTICASONE PROPIONATE [Suspect]
     Indication: BRONCHITIS
     Dosage: 1PUFF UNKNOWN
     Route: 065
     Dates: start: 20070101
  2. HYDROXYZINE [Concomitant]
     Dosage: 2.5ML THREE TIMES PER DAY

REACTIONS (1)
  - PHARYNGITIS [None]
